FAERS Safety Report 24200483 (Version 1)
Quarter: 2024Q3

REPORT INFORMATION
  Report Type: Spontaneous
  Country: US (occurrence: None)
  Receive Date: 20240809
  Receipt Date: 20240809
  Transmission Date: 20241016
  Serious: Yes (Other)
  Sender: Public
  Company Number: None

PATIENT
  Age: 88 Year
  Sex: Male
  Weight: 76.5 kg

DRUGS (2)
  1. NIFEDIPINE [Suspect]
     Active Substance: NIFEDIPINE
     Indication: Hypertension
     Dosage: 1 TABLET DAILY ORAL?
     Route: 048
     Dates: start: 20240530, end: 20240723
  2. NIFEDIPINE [Suspect]
     Active Substance: NIFEDIPINE
     Indication: Heart rate decreased

REACTIONS (2)
  - Urinary incontinence [None]
  - Dysuria [None]

NARRATIVE: CASE EVENT DATE: 20240530
